FAERS Safety Report 22049346 (Version 1)
Quarter: 2023Q1

REPORT INFORMATION
  Report Type: Report from Study
  Country: US (occurrence: US)
  Receive Date: 20230301
  Receipt Date: 20230301
  Transmission Date: 20230417
  Serious: Yes (Other)
  Sender: FDA-Public Use
  Company Number: US-PFIZER INC-PV202300036791

PATIENT
  Sex: Female

DRUGS (3)
  1. LORBRENA [Suspect]
     Active Substance: LORLATINIB
     Dosage: 75 MG
  2. LORBRENA [Suspect]
     Active Substance: LORLATINIB
     Dosage: 100 MG
  3. LORBRENA [Suspect]
     Active Substance: LORLATINIB
     Dosage: 75 MG
     Dates: start: 202207, end: 202207

REACTIONS (6)
  - Bradycardia [Unknown]
  - Dizziness [Unknown]
  - Oedema [Unknown]
  - Fatigue [Unknown]
  - Pruritus [Unknown]
  - Neoplasm progression [Unknown]
